FAERS Safety Report 14200254 (Version 3)
Quarter: 2018Q1

REPORT INFORMATION
  Report Type: Spontaneous
  Country: US (occurrence: US)
  Receive Date: 20171117
  Receipt Date: 20180315
  Transmission Date: 20180508
  Serious: Yes (Other)
  Sender: FDA-Public Use
  Company Number: US-PFIZER INC-2017492409

PATIENT
  Age: 70 Year
  Sex: Female
  Weight: 72.57 kg

DRUGS (2)
  1. METOPROLOL TARTRATE. [Interacting]
     Active Substance: METOPROLOL TARTRATE
     Indication: HEART RATE ABNORMAL
     Dosage: UNK UNK, DAILY (25 MG, HALF A TABLET A DAY ORALLY)
     Route: 048
  2. XELJANZ [Suspect]
     Active Substance: TOFACITINIB CITRATE
     Indication: RHEUMATOID ARTHRITIS
     Dosage: 5 MG, 2X/DAY (AFTER BREAKFAST AND AFTER DINNER)
     Route: 048
     Dates: end: 201711

REACTIONS (3)
  - Drug interaction [Unknown]
  - Bradycardia [Unknown]
  - Heart rate increased [Unknown]
